FAERS Safety Report 5018195-8 (Version None)
Quarter: 2006Q2

REPORT INFORMATION
  Report Type: 
  Country: None (occurrence: None)
  Receive Date: 20060530
  Receipt Date: 20060518
  Transmission Date: 20061013
  Serious: Yes (Hospitalization)
  Sender: FDA-Public Use
  Company Number: 2006066218

PATIENT
  Age: 53 Year
  Sex: Female
  Weight: 81 kg

DRUGS (7)
  1. AMLODIPINE [Suspect]
     Indication: ESSENTIAL HYPERTENSION
     Dosage: 5 MG (5 MG, INTERVAL: EVERY DAY), ORAL
     Route: 048
  2. CLINDAMYCIN HYDROCHLORIDE [Suspect]
     Indication: TOXOPLASMOSIS
     Dosage: 600 MG (600 MG, INTERVAL:  EVERY DAY), ORAL
     Route: 048
     Dates: start: 20060224, end: 20060307
  3. CLOBAZAM (CLOBAZAM) [Suspect]
     Indication: ILL-DEFINED DISORDER
     Dosage: 10 MG (5 MG, BID), ORAL
     Route: 048
     Dates: start: 20060220
  4. PYRIMETHAMINE TAB [Suspect]
     Indication: TOXOPLASMOSIS
     Dosage: 50 MG (50 MG, INTERVAL:  EVERY DAY), ORAL
     Route: 048
     Dates: start: 20060220
  5. OXCARBAZEPINE [Suspect]
     Indication: ILL-DEFINED DISORDER
     Dosage: 600 MG (300 MG, BID), ORAL
     Route: 048
     Dates: start: 20060220
  6. CEFTRIAXONE [Suspect]
     Indication: URINARY TRACT INFECTION
     Dosage: 1 GRAM (1 GRAM, INTERVAL:  EVERY DAY), INTRAVENOUS
     Route: 042
     Dates: start: 20060307, end: 20060307
  7. SULFADIAZINE [Concomitant]

REACTIONS (3)
  - RENAL FAILURE ACUTE [None]
  - TOXIC EPIDERMAL NECROLYSIS [None]
  - URINARY TRACT INFECTION [None]
